FAERS Safety Report 6827379-5 (Version None)
Quarter: 2010Q3

REPORT INFORMATION
  Report Type: 
  Country: None (occurrence: None)
  Receive Date: 20100709
  Receipt Date: 20100707
  Transmission Date: 20110219
  Serious: Yes (Hospitalization)
  Sender: FDA-Public Use
  Company Number: Z0004746A

PATIENT
  Age: 66 Year
  Sex: Male
  Weight: 109.5 kg

DRUGS (4)
  1. OFATUMUMAB [Suspect]
     Indication: LYMPHOMA
     Route: 042
     Dates: start: 20100616
  2. DEXAMETHASONE [Suspect]
     Indication: LYMPHOMA
     Route: 042
     Dates: start: 20100616
  3. CISPLATIN [Suspect]
     Indication: LYMPHOMA
     Dosage: 100MGM2 CONTINUOUS
     Route: 042
  4. CYTARABINE [Suspect]
     Indication: LYMPHOMA
     Route: 042

REACTIONS (3)
  - FEBRILE NEUTROPENIA [None]
  - PRODUCTIVE COUGH [None]
  - WHITE BLOOD CELL COUNT DECREASED [None]
